FAERS Safety Report 14579794 (Version 1)
Quarter: 2018Q1

REPORT INFORMATION
  Report Type: Spontaneous
  Country: US (occurrence: US)
  Receive Date: 20180227
  Receipt Date: 20180227
  Transmission Date: 20180509
  Serious: No
  Sender: FDA-Public Use
  Company Number: US-009507513-1802USA013323

PATIENT
  Age: 21 Year
  Sex: Female
  Weight: 127.89 kg

DRUGS (1)
  1. NEXPLANON [Suspect]
     Active Substance: ETONOGESTREL
     Indication: CONTRACEPTION
     Dosage: 1 DF, UNK, 3 YEAR IMPLANT INSIDE THE LEFT ARM
     Route: 059
     Dates: start: 2017

REACTIONS (4)
  - Amenorrhoea [Recovered/Resolved]
  - Weight fluctuation [Unknown]
  - Headache [Unknown]
  - Weight increased [Unknown]

NARRATIVE: CASE EVENT DATE: 2017
